FAERS Safety Report 14515124 (Version 1)
Quarter: 2018Q1

REPORT INFORMATION
  Report Type: Spontaneous
  Country: US (occurrence: US)
  Receive Date: 20180210
  Receipt Date: 20180210
  Transmission Date: 20180509
  Serious: No
  Sender: FDA-Public Use
  Company Number: US-ASTRAZENECA-2018SE08798

PATIENT
  Age: 19756 Day
  Sex: Female
  Weight: 59 kg

DRUGS (1)
  1. OMEPRAZOLE. [Suspect]
     Active Substance: OMEPRAZOLE
     Indication: NASOPHARYNGITIS
     Route: 048
     Dates: start: 20171228

REACTIONS (7)
  - Swollen tongue [Recovered/Resolved]
  - Product use in unapproved indication [Unknown]
  - Chest discomfort [Recovered/Resolved]
  - Off label use [Unknown]
  - Hangover [Recovered/Resolved]
  - Nasal congestion [Recovered/Resolved]
  - Hypersensitivity [Recovered/Resolved]

NARRATIVE: CASE EVENT DATE: 20171228
